FAERS Safety Report 4721993-9 (Version None)
Quarter: 2005Q3

REPORT INFORMATION
  Report Type: 
  Country: None (occurrence: None)
  Receive Date: 20050720
  Receipt Date: 20050707
  Transmission Date: 20060218
  Serious: Yes (Death)
  Sender: FDA-Public Use
  Company Number: GBWYE208917NOV04

PATIENT

DRUGS (5)
  1. GEMTUZUMAB OZOGAMICIN (GEMTUZUMAB OZOGAMICIN, INJECTION) [Suspect]
  2. FLUDARABINE PHOSPHATE [Concomitant]
  3. CYTARABINE [Concomitant]
  4. G-CSF (GRANULOCYTE COLONY STIMULATING FACTOR) [Concomitant]
  5. IDARUBICIN HCL [Concomitant]

REACTIONS (3)
  - DISSEMINATED INTRAVASCULAR COAGULATION [None]
  - FUNGAL SEPSIS [None]
  - HAEMORRHAGE INTRACRANIAL [None]
